FAERS Safety Report 8471933-4 (Version None)
Quarter: 2012Q2

REPORT INFORMATION
  Report Type: 
  Country: None (occurrence: None)
  Receive Date: 20120627
  Receipt Date: 20120618
  Transmission Date: 20120825
  Serious: Yes (Hospitalization, Other)
  Sender: FDA-Public Use
  Company Number: US-ASTRAZENECA-2012SE19818

PATIENT
  Age: 64 Year
  Sex: Female
  Weight: 73.5 kg

DRUGS (2)
  1. NEXIUM [Suspect]
     Route: 048
  2. BRILINTA [Suspect]
     Indication: MYOCARDIAL INFARCTION
     Route: 048

REACTIONS (8)
  - BREAST CANCER [None]
  - OSTEOARTHRITIS [None]
  - HYPERLIPIDAEMIA [None]
  - NECK PAIN [None]
  - ARTHRALGIA [None]
  - MUSCULOSKELETAL PAIN [None]
  - ACUTE MYOCARDIAL INFARCTION [None]
  - HYPERTENSION [None]
